FAERS Safety Report 9654841 (Version 2)
Quarter: 2013Q4

REPORT INFORMATION
  Report Type: Spontaneous
  Country: US (occurrence: US)
  Receive Date: 20131029
  Receipt Date: 20131029
  Transmission Date: 20140711
  Serious: Yes (Death)
  Sender: FDA-Public Use
  Company Number: US-NAPPMUNDI-USA-2012-0089682

PATIENT
  Age: 53 Year
  Sex: Male
  Weight: 143.31 kg

DRUGS (5)
  1. OXYCONTIN TABLETS [Suspect]
     Indication: PRODUCT USED FOR UNKNOWN INDICATION
     Dosage: 80 MG, SEE TEXT
  2. OXYCODONE HYDROCHLORIDE (SIMILAR TO NDA 20-553) [Suspect]
     Indication: PRODUCT USED FOR UNKNOWN INDICATION
     Dosage: 30 MG, SEE TEXT
  3. OXYCODONE HYDROCHLORIDE (SIMILAR TO NDA 20-553) [Suspect]
     Dosage: 15 MG, SEE TEXT
  4. ALPRAZOLAM [Suspect]
     Indication: PRODUCT USED FOR UNKNOWN INDICATION
     Dosage: UNK, SEE TEXT
  5. CYMBALTA [Concomitant]
     Indication: PRODUCT USED FOR UNKNOWN INDICATION
     Dosage: 30 MG, UNK

REACTIONS (8)
  - Overdose [Fatal]
  - Road traffic accident [Unknown]
  - Pain [Unknown]
  - Neck pain [Unknown]
  - Back pain [Unknown]
  - Gait disturbance [Unknown]
  - Headache [Unknown]
  - Drug ineffective [Unknown]
